FAERS Safety Report 23237004 (Version 1)
Quarter: 2023Q4

REPORT INFORMATION
  Report Type: Spontaneous
  Country: US (occurrence: US)
  Receive Date: 20231128
  Receipt Date: 20231128
  Transmission Date: 20240109
  Serious: Yes (Hospitalization)
  Sender: FDA-Public Use
  Company Number: US-Fresenius Medical Care Renal Therapies Group-FMC-2311-001283

PATIENT
  Age: 66 Year
  Sex: Female

DRUGS (3)
  1. DELFLEX WITH DEXTROSE 1.5% LOW MAGNESIUM LOW CALCIUM [Suspect]
     Active Substance: CALCIUM CHLORIDE\DEXTROSE\MAGNESIUM CHLORIDE\SODIUM CHLORIDE\SODIUM LACTATE
     Dosage: 7 DAYS-A-WEEK, EXCHANGES = 5, FILL VOLUME = 2300 ML, DWELL TIME = 1.5 HOURS, LAST FILL = 1000 ML, DA
     Route: 033
  2. DELFLEX WITH DEXTROSE 2.5% LOW MAGNESIUM LOW CALCIUM [Suspect]
     Active Substance: CALCIUM CHLORIDE\DEXTROSE\MAGNESIUM CHLORIDE\SODIUM CHLORIDE\SODIUM LACTATE
     Dosage: 7 DAYS-A-WEEK, EXCHANGES = 5, FILL VOLUME = 2300 ML, DWELL TIME = 1.5 HOURS, LAST FILL = 1000 ML, DA
     Route: 033
  3. DELFLEX WITH DEXTROSE 4.25% LOW MAGNESIUM LOW CALCIUM [Suspect]
     Active Substance: CALCIUM CHLORIDE\DEXTROSE\MAGNESIUM CHLORIDE\SODIUM CHLORIDE\SODIUM LACTATE
     Dosage: 7 DAYS-A-WEEK, EXCHANGES = 5, FILL VOLUME = 2300 ML, DWELL TIME = 1.5 HOURS, LAST FILL = 1000 ML, DA
     Route: 033

REACTIONS (2)
  - Cardiac failure congestive [Recovered/Resolved]
  - Chronic obstructive pulmonary disease [Recovered/Resolved]

NARRATIVE: CASE EVENT DATE: 20231114
